FAERS Safety Report 16003776 (Version 1)
Quarter: 2019Q1

REPORT INFORMATION
  Report Type: Spontaneous
  Country: US (occurrence: US)
  Receive Date: 20190226
  Receipt Date: 20190226
  Transmission Date: 20190418
  Serious: Yes (Other)
  Sender: FDA-Public Use
  Company Number: US-UCBSA-2019007288

PATIENT
  Age: 41 Year
  Sex: Female

DRUGS (1)
  1. LACOSAMIDE. [Suspect]
     Active Substance: LACOSAMIDE
     Indication: EPILEPSY
     Dosage: UNK

REACTIONS (6)
  - Migraine [Unknown]
  - Anxiety [Unknown]
  - Type 2 diabetes mellitus [Unknown]
  - Seizure [Unknown]
  - Depression [Unknown]
  - Hypertension [Unknown]
